FAERS Safety Report 5312617-0 (Version None)
Quarter: 2007Q2

REPORT INFORMATION
  Report Type: 
  Country: None (occurrence: None)
  Receive Date: 20070430
  Receipt Date: 20070425
  Transmission Date: 20071010
  Serious: Yes (Other)
  Sender: FDA-Public Use
  Company Number: US-BRISTOL-MYERS SQUIBB COMPANY-13759683

PATIENT

DRUGS (1)
  1. SUSTIVA [Suspect]

REACTIONS (2)
  - MACULOPATHY [None]
  - MEAN CELL VOLUME INCREASED [None]
